FAERS Safety Report 21610521 (Version 2)
Quarter: 2022Q4

REPORT INFORMATION
  Report Type: Spontaneous
  Country: TR (occurrence: TR)
  Receive Date: 20221117
  Receipt Date: 20221215
  Transmission Date: 20230113
  Serious: Yes (Hospitalization)
  Sender: FDA-Public Use
  Company Number: TR-TEVA-2019-TR-994886

PATIENT
  Age: 20 Year
  Sex: Male

DRUGS (1)
  1. PREGABALIN [Suspect]
     Active Substance: PREGABALIN
     Indication: Pain
     Dosage: 2.7 GRAM DAILY; (9 CAPSULES X 300 MG) PER DAY
     Route: 065

REACTIONS (4)
  - Psychotic disorder [Recovered/Resolved]
  - Withdrawal syndrome [Recovered/Resolved]
  - Intentional self-injury [Recovered/Resolved]
  - Suicide attempt [Recovered/Resolved]
